FAERS Safety Report 5766640-2 (Version None)
Quarter: 2008Q2

REPORT INFORMATION
  Report Type: 
  Country: None (occurrence: None)
  Receive Date: 20080610
  Receipt Date: 20080610
  Transmission Date: 20081010
  Serious: Yes (Hospitalization)
  Sender: FDA-Public Use
  Company Number: None

PATIENT
  Age: 95 Year
  Sex: Female
  Weight: 75 kg

DRUGS (1)
  1. WARFARIN SODIUM [Suspect]
     Indication: DEEP VEIN THROMBOSIS
     Dosage: 4MG DAILY PO
     Route: 048
     Dates: start: 20080211, end: 20080223

REACTIONS (4)
  - GASTROINTESTINAL DISORDER [None]
  - MUSCLE HAEMORRHAGE [None]
  - NEOPLASM MALIGNANT [None]
  - NODULE [None]
